FAERS Safety Report 20617918 (Version 1)
Quarter: 2022Q1

REPORT INFORMATION
  Report Type: Spontaneous
  Country: GB (occurrence: GB)
  Receive Date: 20220321
  Receipt Date: 20220321
  Transmission Date: 20220423
  Serious: Yes (Hospitalization, Other)
  Sender: FDA-Public Use
  Company Number: GB-ABBVIE-22K-167-4321305-00

PATIENT
  Age: 36 Year
  Sex: Male

DRUGS (4)
  1. VALPROIC ACID [Suspect]
     Active Substance: VALPROIC ACID
     Indication: Partial seizures
     Route: 042
  2. PHENYTOIN [Suspect]
     Active Substance: PHENYTOIN
     Indication: Seizure
     Route: 065
  3. LACOSAMIDE [Suspect]
     Active Substance: LACOSAMIDE
     Indication: Seizure
     Route: 065
  4. LEVETIRACETAM [Suspect]
     Active Substance: LEVETIRACETAM
     Indication: Seizure
     Route: 065

REACTIONS (6)
  - Seizure [Unknown]
  - Muscle twitching [Unknown]
  - Unresponsive to stimuli [Unknown]
  - Status epilepticus [Unknown]
  - Hyperkinesia [Recovered/Resolved]
  - Therapeutic product effect incomplete [Unknown]
